FAERS Safety Report 15275294 (Version 1)
Quarter: 2018Q3

REPORT INFORMATION
  Report Type: Spontaneous
  Country: US (occurrence: US)
  Receive Date: 20180814
  Receipt Date: 20180814
  Transmission Date: 20181010
  Serious: Yes (Other)
  Sender: FDA-Public Use
  Company Number: US-IPSEN BIOPHARMACEUTICALS, INC.-2018-11750

PATIENT
  Age: 61 Year
  Sex: Male
  Weight: 92.35 kg

DRUGS (4)
  1. HYDROCODONE BITARTRATE AND ACETAMINOPHEN [Concomitant]
     Active Substance: ACETAMINOPHEN\HYDROCODONE BITARTRATE
     Dosage: 5 + 325 MG EVERY 6 H
  2. SOMATULINE DEPOT [Suspect]
     Active Substance: LANREOTIDE ACETATE
     Indication: NEUROENDOCRINE TUMOUR
     Dosage: 120 MG
     Route: 058
     Dates: start: 20180130
  3. MILK THISTLE [Concomitant]
     Active Substance: DIETARY SUPPLEMENT\HERBALS\MILK THISTLE
     Dosage: EVERY NOW AND THEN
  4. ONEADAY VITAMIN [Concomitant]
     Dosage: EVERY NOW AND THEN

REACTIONS (8)
  - Medication residue present [Unknown]
  - Wrong technique in product usage process [Unknown]
  - Metastases to liver [Unknown]
  - Mass [Unknown]
  - Metastases to peritoneum [Unknown]
  - Condition aggravated [Unknown]
  - Skin mass [Unknown]
  - Metastasis [Unknown]

NARRATIVE: CASE EVENT DATE: 20180802
